FAERS Safety Report 6907747-3 (Version None)
Quarter: 2010Q3

REPORT INFORMATION
  Report Type: 
  Country: None (occurrence: None)
  Receive Date: 20100712
  Receipt Date: 20091104
  Transmission Date: 20110219
  Serious: No
  Sender: FDA-Public Use
  Company Number: US-001119

PATIENT
  Sex: Female
  Weight: 33 kg

DRUGS (2)
  1. KUVAN [Suspect]
     Indication: PHENYLKETONURIA
     Dosage: (800 MG QD ORAL)
     Route: 048
     Dates: start: 20090922
  2. ANTIBIOTICS [Concomitant]

REACTIONS (1)
  - INFLUENZA [None]
